FAERS Safety Report 14651644 (Version 1)
Quarter: 2018Q1

REPORT INFORMATION
  Report Type: Spontaneous
  Country: RO (occurrence: RO)
  Receive Date: 20180317
  Receipt Date: 20180317
  Transmission Date: 20180509
  Serious: Yes (Death, Life-Threatening, Hospitalization, Other)
  Sender: FDA-Public Use
  Company Number: RO-AMGEN-ROUSP2018036308

PATIENT
  Age: 49 Year
  Sex: Female
  Weight: 44 kg

DRUGS (5)
  1. KYPROLIS [Suspect]
     Active Substance: CARFILZOMIB
     Indication: PLASMA CELL MYELOMA
     Dosage: 20 MG, UNK
     Route: 042
     Dates: start: 20180215, end: 20180308
  2. COLISTIN [Concomitant]
     Active Substance: COLISTIN
     Indication: SEPSIS
     Dosage: 2 MILLION IU, 12 HOUR
     Dates: end: 20180311
  3. MERONEM [Concomitant]
     Active Substance: MEROPENEM
     Indication: SEPSIS
     Dosage: 500 MG, 12 HOUR
     Dates: end: 20180311
  4. VANCOMYCIN [Concomitant]
     Active Substance: VANCOMYCIN
     Indication: SEPSIS
     Dosage: 1 G, 48 HOURS
     Dates: end: 20180311
  5. DEXAMETHASONE. [Concomitant]
     Active Substance: DEXAMETHASONE
     Dosage: 8 MG, 24 HOURS
     Dates: end: 20180311

REACTIONS (8)
  - Acute pulmonary oedema [Unknown]
  - Cardiogenic shock [Unknown]
  - Procalcitonin increased [Unknown]
  - Pyrexia [Unknown]
  - Infection [Unknown]
  - C-reactive protein increased [Unknown]
  - Thrombocytopenia [Unknown]
  - Acute myocardial infarction [Fatal]

NARRATIVE: CASE EVENT DATE: 2018
